FAERS Safety Report 19927871 (Version 1)
Quarter: 2021Q4

REPORT INFORMATION
  Report Type: Spontaneous
  Country: US (occurrence: US)
  Receive Date: 20211005
  Receipt Date: 20211005
  Transmission Date: 20220303
  Serious: No
  Sender: FDA-Public Use
  Company Number: None

PATIENT
  Age: 40 Year
  Sex: Male

DRUGS (3)
  1. ADCIRCA [Suspect]
     Active Substance: TADALAFIL
     Indication: Pulmonary arterial hypertension
     Route: 048
     Dates: start: 20190814
  2. LETAIRIS [Suspect]
     Active Substance: AMBRISENTAN
  3. UPTRAVI [Suspect]
     Active Substance: SELEXIPAG

REACTIONS (6)
  - Therapy interrupted [None]
  - Product distribution issue [None]
  - Intentional product use issue [None]
  - Dyspnoea [None]
  - Dyspnoea exertional [None]
  - Product supply issue [None]

NARRATIVE: CASE EVENT DATE: 20211001
